FAERS Safety Report 7484190-2 (Version None)
Quarter: 2011Q2

REPORT INFORMATION
  Report Type: 
  Country: None (occurrence: None)
  Receive Date: 20110513
  Receipt Date: 20110513
  Transmission Date: 20111010
  Serious: Yes (Hospitalization)
  Sender: FDA-Public Use
  Company Number: None

PATIENT
  Sex: Male
  Weight: 76.2043 kg

DRUGS (2)
  1. GEODON [Suspect]
     Indication: AGGRESSION
     Dosage: 20 MG PRN -2 DOSES GIVEN IM
     Route: 030
     Dates: start: 20110316, end: 20110328
  2. GEODON [Suspect]
     Indication: SCHIZOAFFECTIVE DISORDER BIPOLAR TYPE
     Dosage: 80 MG BID PO
     Route: 048
     Dates: start: 20100730, end: 20110328

REACTIONS (10)
  - DYSARTHRIA [None]
  - DYSTONIA [None]
  - GAZE PALSY [None]
  - GAIT DISTURBANCE [None]
  - ABNORMAL BEHAVIOUR [None]
  - CONFUSIONAL STATE [None]
  - FATIGUE [None]
  - SOMNOLENCE [None]
  - DROOLING [None]
  - ALTERED STATE OF CONSCIOUSNESS [None]
